FAERS Safety Report 16358149 (Version 2)
Quarter: 2019Q2

REPORT INFORMATION
  Report Type: Spontaneous
  Country: IR (occurrence: IR)
  Receive Date: 20190527
  Receipt Date: 20190612
  Transmission Date: 20190711
  Serious: Yes (Hospitalization, Other)
  Sender: FDA-Public Use
  Company Number: IR-B.I. PHARMACEUTICALS,INC./RIDGEFIELD-2019-BI-022917

PATIENT
  Age: 71 Year
  Sex: Female

DRUGS (3)
  1. PREDNISOLONE. [Concomitant]
     Active Substance: PREDNISOLONE
     Indication: PRODUCT USED FOR UNKNOWN INDICATION
     Route: 065
  2. PIRFENEX [Concomitant]
     Active Substance: PIRFENIDONE
     Indication: PRODUCT USED FOR UNKNOWN INDICATION
     Route: 065
  3. SPIRIVA [Suspect]
     Active Substance: TIOTROPIUM BROMIDE MONOHYDRATE
     Indication: PRODUCT USED FOR UNKNOWN INDICATION
     Route: 065
     Dates: start: 20190423, end: 20190502

REACTIONS (4)
  - Chest pain [Unknown]
  - Hypoxia [Unknown]
  - Pulmonary embolism [Unknown]
  - Haematochezia [Unknown]

NARRATIVE: CASE EVENT DATE: 20190502
